FAERS Safety Report 8247673-3 (Version None)
Quarter: 2012Q1

REPORT INFORMATION
  Report Type: 
  Country: None (occurrence: None)
  Receive Date: 20120330
  Receipt Date: 20120319
  Transmission Date: 20120608
  Serious: No
  Sender: FDA-Public Use
  Company Number: US-JNJFOC-20120310944

PATIENT

DRUGS (1)
  1. INVEGA SUSTENNA [Suspect]
     Indication: PRODUCT USED FOR UNKNOWN INDICATION
     Dosage: 235MG/DAY 8 DOSE
     Route: 030
     Dates: start: 20120101

REACTIONS (1)
  - DRUG INEFFECTIVE [None]
